FAERS Safety Report 9797775 (Version 1)
Quarter: 2014Q1

REPORT INFORMATION
  Report Type: Spontaneous
  Country: FR (occurrence: FR)
  Receive Date: 20140106
  Receipt Date: 20140106
  Transmission Date: 20141002
  Serious: Yes (Hospitalization)
  Sender: FDA-Public Use
  Company Number: FR-ROCHE-1329101

PATIENT
  Age: 79 Year
  Sex: Male

DRUGS (7)
  1. ROACTEMRA [Suspect]
     Indication: POLYCHONDRITIS
     Dosage: 20 MG/ML
     Route: 041
     Dates: start: 20131010, end: 20131010
  2. STILNOX [Concomitant]
     Dosage: AT BEDTIME
     Route: 065
  3. OPHTIM [Concomitant]
     Dosage: 2 INSTILLATIONS DAILY
     Route: 065
  4. BISOCE [Concomitant]
     Dosage: 1 DF IN THE MORNING
     Route: 065
  5. AMLOR [Concomitant]
     Dosage: 1 DF IN THE MORNING AND 1 DF IN THE EVENING
     Route: 065
  6. SPIRIVA [Concomitant]
     Dosage: 2 INHALATION IN A DAY
     Route: 065
  7. CORTANCYL [Concomitant]
     Route: 065

REACTIONS (3)
  - Hepatocellular injury [Recovering/Resolving]
  - Cholestasis [Recovering/Resolving]
  - Eosinophilia [Unknown]
